FAERS Safety Report 4963605-5 (Version None)
Quarter: 2006Q1

REPORT INFORMATION
  Report Type: 
  Country: None (occurrence: None)
  Receive Date: 20060320
  Receipt Date: 20060315
  Transmission Date: 20060701
  Serious: Yes (Disabling)
  Sender: FDA-Public Use
  Company Number: 2006025714

PATIENT
  Age: 69 Year
  Sex: Male

DRUGS (1)
  1. XALATAN [Suspect]
     Indication: GLAUCOMA
     Dosage: 1 IN 1 D, OPHTHALMIC
     Route: 047
     Dates: start: 20060120

REACTIONS (1)
  - FACIAL PALSY [None]
